FAERS Safety Report 9648674 (Version 2)
Quarter: 2013Q4

REPORT INFORMATION
  Report Type: Spontaneous
  Country: DE (occurrence: DE)
  Receive Date: 20131028
  Receipt Date: 20131108
  Transmission Date: 20140711
  Serious: Yes (Other)
  Sender: FDA-Public Use
  Company Number: DE-JNJFOC-20131016176

PATIENT
  Sex: Male

DRUGS (4)
  1. XARELTO [Suspect]
     Indication: THROMBOSIS PROPHYLAXIS
     Route: 048
  2. XARELTO [Suspect]
     Indication: PULMONARY EMBOLISM
     Route: 048
  3. MADOPAR [Interacting]
     Indication: PARKINSON^S DISEASE
     Route: 065
  4. LEPONEX [Concomitant]
     Indication: PARKINSON^S DISEASE
     Route: 065

REACTIONS (2)
  - Hallucination, visual [Recovered/Resolved]
  - Drug interaction [Unknown]
